FAERS Safety Report 14637925 (Version 1)
Quarter: 2018Q1

REPORT INFORMATION
  Report Type: Spontaneous
  Country: US (occurrence: US)
  Receive Date: 20180313
  Receipt Date: 20180313
  Transmission Date: 20180509
  Serious: Yes (Other)
  Sender: FDA-Public Use
  Company Number: None

PATIENT
  Age: 47 Year
  Sex: Female
  Weight: 67.5 kg

DRUGS (7)
  1. KROGER IBUPROFEN 200 MG TABLETS [Suspect]
     Active Substance: IBUPROFEN
     Indication: TOOTHACHE
     Dosage: ?          QUANTITY:500 TABLET(S);?
     Route: 048
     Dates: start: 20161123, end: 20180312
  2. VITAMIN D [Concomitant]
     Active Substance: CHOLECALCIFEROL
  3. KROGER IBUPROFEN 200 MG TABLETS [Suspect]
     Active Substance: IBUPROFEN
     Indication: HEADACHE
     Dosage: ?          QUANTITY:500 TABLET(S);?
     Route: 048
     Dates: start: 20161123, end: 20180312
  4. KROGER IBUPROFEN 200 MG TABLETS [Suspect]
     Active Substance: IBUPROFEN
     Indication: PAIN
     Dosage: ?          QUANTITY:500 TABLET(S);?
     Route: 048
     Dates: start: 20161123, end: 20180312
  5. SUDEFED [Concomitant]
  6. SPIRONOLACTONE. [Concomitant]
     Active Substance: SPIRONOLACTONE
  7. PREMARIN [Concomitant]
     Active Substance: ESTROGENS, CONJUGATED

REACTIONS (8)
  - Headache [None]
  - Vision blurred [None]
  - Dysarthria [None]
  - Cardiac flutter [None]
  - Weight increased [None]
  - Product commingling [None]
  - Pruritus [None]
  - Nausea [None]

NARRATIVE: CASE EVENT DATE: 20180312
